FAERS Safety Report 17153591 (Version 1)
Quarter: 2019Q4

REPORT INFORMATION
  Report Type: Other
  Country: CA (occurrence: CA)
  Receive Date: 20191213
  Receipt Date: 20191213
  Transmission Date: 20200122
  Serious: Yes (Other)
  Sender: FDA-Public Use
  Company Number: CA-PFIZER INC-2019534583

PATIENT

DRUGS (7)
  1. PROPOFOL. [Suspect]
     Active Substance: PROPOFOL
     Dosage: 0.5 MG/KG, UNK
     Route: 065
  2. REMIFENTANIL [Suspect]
     Active Substance: REMIFENTANIL
     Dosage: 1 UG/KG, UNK
     Route: 065
  3. ISOFLURANE. [Suspect]
     Active Substance: ISOFLURANE
     Indication: ANAESTHESIA
     Dosage: UNK
     Route: 065
  4. REMIFENTANIL [Suspect]
     Active Substance: REMIFENTANIL
     Dosage: 0.5 UG/KG, UNK
     Route: 065
  5. REMIFENTANIL [Suspect]
     Active Substance: REMIFENTANIL
     Dosage: 0.25 UG/KG (EVERY 1 MINUTE)
     Route: 065
  6. PROPOFOL. [Suspect]
     Active Substance: PROPOFOL
     Dosage: 10 MG, UNK
     Route: 065
  7. PROPOFOL. [Suspect]
     Active Substance: PROPOFOL
     Dosage: 100 UG/KG (1 EVERY 1 MINUTES)
     Route: 065

REACTIONS (3)
  - Loss of consciousness [Recovered/Resolved]
  - Muscle rigidity [Recovered/Resolved]
  - Apnoea [Recovered/Resolved]
